FAERS Safety Report 10860722 (Version 1)
Quarter: 2015Q1

REPORT INFORMATION
  Report Type: Spontaneous
  Country: US (occurrence: US)
  Receive Date: 20150224
  Receipt Date: 20150224
  Transmission Date: 20150721
  Serious: Yes (Hospitalization)
  Sender: FDA-Public Use
  Company Number: US-BRISTOL-MYERS SQUIBB COMPANY-BMS-2015-009027

PATIENT
  Sex: Male

DRUGS (1)
  1. SPRYCEL [Suspect]
     Active Substance: DASATINIB
     Indication: LUNG NEOPLASM MALIGNANT
     Dosage: 100 MG, QD
     Route: 048

REACTIONS (5)
  - Asthenia [Unknown]
  - Diarrhoea [Unknown]
  - Pulmonary oedema [Unknown]
  - Nausea [Unknown]
  - Off label use [Unknown]
